FAERS Safety Report 7505024-3 (Version None)
Quarter: 2011Q2

REPORT INFORMATION
  Report Type: 
  Country: None (occurrence: None)
  Receive Date: 20110526
  Receipt Date: 20110517
  Transmission Date: 20111010
  Serious: No
  Sender: FDA-Public Use
  Company Number: US-BIOGENIDEC-2011BI018686

PATIENT
  Sex: Female

DRUGS (1)
  1. TYSABRI [Suspect]
     Indication: MULTIPLE SCLEROSIS
     Route: 042

REACTIONS (7)
  - ARTHRITIS [None]
  - GALLBLADDER DISORDER [None]
  - ASPARTATE AMINOTRANSFERASE INCREASED [None]
  - MIGRAINE [None]
  - HYPERTENSION [None]
  - BLOOD CHOLESTEROL INCREASED [None]
  - ALANINE AMINOTRANSFERASE INCREASED [None]
